FAERS Safety Report 5204432-3 (Version None)
Quarter: 2007Q1

REPORT INFORMATION
  Report Type: 
  Country: None (occurrence: None)
  Receive Date: 20070110
  Receipt Date: 20060324
  Transmission Date: 20070707
  Serious: No
  Sender: FDA-Public Use
  Company Number: US-BRISTOL-MYERS SQUIBB COMPANY-13325782

PATIENT
  Age: 54 Year
  Sex: Male
  Weight: 73 kg

DRUGS (13)
  1. ABILIFY [Suspect]
     Indication: BIPOLAR DISORDER
     Dosage: DOSE VALUE:  INCREASED TO 15 MG BID AFTER 1 WEEK
     Dates: start: 20060101
  2. PROTONIX [Concomitant]
  3. WELLBUTRIN XL [Concomitant]
  4. LAMICTAL [Concomitant]
  5. AVAPRO [Concomitant]
  6. DETROL LA [Concomitant]
  7. DIAZEPAM [Concomitant]
  8. LORAZEPAM [Concomitant]
  9. HYDROCODONE + ACETAMINOPHEN [Concomitant]
  10. BENZTROPINE MESYLATE [Concomitant]
  11. TEMAZEPAM [Concomitant]
  12. CELEBREX [Concomitant]
  13. NAMENDA [Concomitant]

REACTIONS (2)
  - INCREASED APPETITE [None]
  - WEIGHT INCREASED [None]
